FAERS Safety Report 17705690 (Version 3)
Quarter: 2020Q4

REPORT INFORMATION
  Report Type: Report from Study
  Country: None (occurrence: US)
  Receive Date: 20200424
  Receipt Date: 20201104
  Transmission Date: 20210113
  Serious: No
  Sender: FDA-Public Use
  Company Number: US-BIOVITRUM-2020US0434

PATIENT
  Age: 7 Year
  Sex: Male

DRUGS (1)
  1. KINERET [Suspect]
     Active Substance: ANAKINRA
     Indication: JUVENILE IDIOPATHIC ARTHRITIS
     Route: 058
     Dates: start: 20200109

REACTIONS (7)
  - Pruritus [Unknown]
  - Off label use [Unknown]
  - White blood cell count decreased [Unknown]
  - Product dose omission issue [Unknown]
  - Skin mass [Unknown]
  - Injection site pain [Unknown]
  - Skin exfoliation [Unknown]

NARRATIVE: CASE EVENT DATE: 20200109
